FAERS Safety Report 19759828 (Version 2)
Quarter: 2021Q3

REPORT INFORMATION
  Report Type: Report from Study
  Country: None (occurrence: US)
  Receive Date: 20210830
  Receipt Date: 20210916
  Transmission Date: 20211014
  Serious: Yes (Other)
  Sender: FDA-Public Use
  Company Number: US-ABBVIE-21K-163-4012054-00

PATIENT
  Sex: Female

DRUGS (3)
  1. PFIZER?BIONTECH COVID?19 VACCINE [Concomitant]
     Active Substance: TOZINAMERAN
     Indication: COVID-19 IMMUNISATION
     Route: 030
     Dates: start: 20210113, end: 20210113
  2. HUMIRA [Suspect]
     Active Substance: ADALIMUMAB
     Route: 058
  3. HUMIRA [Suspect]
     Active Substance: ADALIMUMAB
     Indication: PSORIASIS
     Route: 058

REACTIONS (10)
  - Weight increased [Recovering/Resolving]
  - Dyspepsia [Recovering/Resolving]
  - Back disorder [Recovering/Resolving]
  - Psoriasis [Not Recovered/Not Resolved]
  - Melanocytic naevus [Recovering/Resolving]
  - Migraine [Recovering/Resolving]
  - Mental disorder [Recovering/Resolving]
  - Rash [Recovering/Resolving]
  - Headache [Recovering/Resolving]
  - Neoplasm malignant [Recovering/Resolving]
